FAERS Safety Report 7880966-8 (Version None)
Quarter: 2011Q4

REPORT INFORMATION
  Report Type: 
  Country: None (occurrence: None)
  Receive Date: 20111101
  Receipt Date: 20111025
  Transmission Date: 20120403
  Serious: No
  Sender: FDA-Public Use
  Company Number: US-ABBOTT-11P-163-0851103-00

PATIENT
  Sex: Female
  Weight: 81.266 kg

DRUGS (12)
  1. CYMBALTA [Concomitant]
  2. BUTRANS [Suspect]
     Indication: PAIN
     Route: 062
     Dates: start: 20110501, end: 20110701
  3. VICODIN [Suspect]
     Indication: PAIN
     Dosage: 5/325MG QID
     Route: 048
     Dates: start: 20100316, end: 20101201
  4. AMITRIPTYLINE HCL [Concomitant]
     Indication: PRODUCT USED FOR UNKNOWN INDICATION
     Dosage: AT HOUR OF SLEEP
  5. CYMBALTA [Concomitant]
     Indication: PRODUCT USED FOR UNKNOWN INDICATION
  6. ALBUTEROL PROAIR [Concomitant]
     Indication: PRODUCT USED FOR UNKNOWN INDICATION
     Dosage: 1-2 PUFFS EVERY 4 HOURS AS NEEDED
  7. FLECTOR [Concomitant]
     Dosage: PATCH
  8. IRON SULFATETHIAMIN COMPOUND TAB [Concomitant]
     Indication: PRODUCT USED FOR UNKNOWN INDICATION
  9. MOMETASONE FUROATE [Concomitant]
     Indication: PRODUCT USED FOR UNKNOWN INDICATION
  10. ALBUTEROL [Concomitant]
     Indication: WHEEZING
     Dosage: NEBULIZER; EVERY 4 HOURS AS NEEDED
  11. FLECTOR [Concomitant]
     Indication: PRODUCT USED FOR UNKNOWN INDICATION
     Route: 062
  12. NUCYNTA [Suspect]
     Indication: PAIN
     Dates: end: 20110519

REACTIONS (7)
  - ANXIETY [None]
  - FEELING ABNORMAL [None]
  - DYSPNOEA [None]
  - DEPRESSED MOOD [None]
  - ASTHENIA [None]
  - MEMORY IMPAIRMENT [None]
  - CONSTIPATION [None]
